FAERS Safety Report 5741889-3 (Version None)
Quarter: 2008Q2

REPORT INFORMATION
  Report Type: 
  Country: None (occurrence: None)
  Receive Date: 20080519
  Receipt Date: 20080512
  Transmission Date: 20081010
  Serious: Yes (Death)
  Sender: FDA-Public Use
  Company Number: GB-JNJFOC-20080502116

PATIENT
  Age: 56 Year
  Sex: Male
  Weight: 94.3 kg

DRUGS (11)
  1. ITRACONAZOLE [Suspect]
     Indication: FUNGAL INFECTION
     Route: 048
  2. VORICONAZOLE [Concomitant]
     Indication: FUNGAL INFECTION
     Route: 048
  3. ZOPICLONE [Concomitant]
     Indication: INSOMNIA
     Route: 048
  4. ALLOPURINOL [Concomitant]
     Indication: CHRONIC LYMPHOCYTIC LEUKAEMIA
     Route: 048
  5. AMBISOME [Concomitant]
     Indication: FUNGAL INFECTION
     Route: 042
  6. LANSOPRAZOLE [Concomitant]
     Indication: DYSPEPSIA
     Route: 048
  7. MEROPENEM [Concomitant]
     Indication: PYREXIA
     Route: 042
  8. ACETAMINOPHEN [Concomitant]
     Indication: PYREXIA
     Route: 048
  9. PREDNISOLONE [Concomitant]
     Indication: CHRONIC LYMPHOCYTIC LEUKAEMIA
     Route: 048
  10. TEICOPLANIN [Concomitant]
     Indication: PYREXIA
     Route: 042
  11. TRAMADOL HCL [Concomitant]
     Indication: PYREXIA
     Route: 048

REACTIONS (1)
  - DEATH [None]
